FAERS Safety Report 12242875 (Version 1)
Quarter: 2016Q2

REPORT INFORMATION
  Report Type: Spontaneous
  Country: US (occurrence: US)
  Receive Date: 20160406
  Receipt Date: 20160406
  Transmission Date: 20160815
  Serious: No
  Sender: FDA-Public Use
  Company Number: US-PFIZER INC-2016177735

PATIENT
  Age: 89 Year
  Sex: Female
  Weight: 55.33 kg

DRUGS (12)
  1. SUTENT [Suspect]
     Active Substance: SUNITINIB MALATE
     Dosage: 25 MG, DAILY WITHOUT REST PERIOD
  2. ASPIRIN. [Concomitant]
     Active Substance: ASPIRIN
     Dosage: 81 MG, UNK
     Route: 048
  3. SODIUM BICARBONATE. [Concomitant]
     Active Substance: SODIUM BICARBONATE
     Dosage: 650 MG, 3X/DAY
     Route: 048
  4. KAYEXALATE [Concomitant]
     Active Substance: SODIUM POLYSTYRENE SULFONATE
     Indication: HYPERKALAEMIA
     Dosage: UNK UNK, 2X/WEEK
  5. SUTENT [Suspect]
     Active Substance: SUNITINIB MALATE
     Dosage: 25 MG, CYCLIC (4 WEEKS, THEN OFF 2 WEEKS)
     Route: 048
     Dates: start: 201403
  6. BIOTIN [Concomitant]
     Active Substance: BIOTIN
     Dosage: 1000 UG, UNK
     Route: 048
  7. FERROUS SULFATE. [Concomitant]
     Active Substance: FERROUS SULFATE
     Dosage: 325 MG, UNK (325 (65 FE) MG)
     Route: 048
  8. SUTENT [Suspect]
     Active Substance: SUNITINIB MALATE
     Dosage: 25 MG, CYCLIC (4 WEEKS, THEN OFF 2 WEEKS)
     Dates: start: 20140708
  9. TRAMADOL HCL [Concomitant]
     Active Substance: TRAMADOL HYDROCHLORIDE
     Indication: PAIN
     Dosage: 25 MG, 2X/DAY (AS NEEDED)
     Route: 048
  10. VITAMIN D2 [Concomitant]
     Active Substance: ERGOCALCIFEROL
  11. SUTENT [Suspect]
     Active Substance: SUNITINIB MALATE
     Indication: METASTATIC RENAL CELL CARCINOMA
     Dosage: UNK
     Dates: start: 201009, end: 201106
  12. VITAMIN D3 [Concomitant]
     Active Substance: CHOLECALCIFEROL
     Dosage: 2000 IU, UNK
     Route: 048

REACTIONS (11)
  - Metastatic renal cell carcinoma [Unknown]
  - Dysphonia [Unknown]
  - Haematuria [Unknown]
  - Pyrexia [Unknown]
  - Breast cyst [Unknown]
  - Fatigue [Unknown]
  - Disease progression [Unknown]
  - Increased tendency to bruise [Unknown]
  - Chills [Unknown]
  - Pelvic pain [Unknown]
  - Epistaxis [Unknown]

NARRATIVE: CASE EVENT DATE: 200512
